FAERS Safety Report 25111004 (Version 2)
Quarter: 2025Q3

REPORT INFORMATION
  Report Type: Spontaneous
  Country: IR (occurrence: IR)
  Receive Date: 20250324
  Receipt Date: 20250804
  Transmission Date: 20251021
  Serious: Yes (Hospitalization, Other)
  Sender: IPCA
  Company Number: IR-IPCA LABORATORIES LIMITED-IPC-2025-IR-000663

PATIENT

DRUGS (2)
  1. METOCLOPRAMIDE [Suspect]
     Active Substance: METOCLOPRAMIDE
     Indication: Nausea
     Route: 048
  2. METOCLOPRAMIDE [Suspect]
     Active Substance: METOCLOPRAMIDE
     Indication: Vomiting

REACTIONS (4)
  - Extrapyramidal disorder [Recovering/Resolving]
  - Vision blurred [Recovering/Resolving]
  - Oculogyric crisis [Recovering/Resolving]
  - Accidental overdose [Unknown]
